FAERS Safety Report 4346027-X (Version None)
Quarter: 2004Q2

REPORT INFORMATION
  Report Type: 
  Country: None (occurrence: None)
  Receive Date: 20040423
  Receipt Date: 20040423
  Transmission Date: 20050107
  Serious: Yes (Disabling)
  Sender: FDA-Public Use
  Company Number: None

PATIENT
  Age: 54 Year
  Sex: Male
  Weight: 79.3795 kg

DRUGS (1)
  1. ZOLOFT [Suspect]
     Dosage: 100 MG ONCE A DAY ORAL
     Route: 048
     Dates: start: 20040301, end: 20040407

REACTIONS (8)
  - ANGER [None]
  - DRUG INEFFECTIVE [None]
  - HOSTILITY [None]
  - IMPAIRED WORK ABILITY [None]
  - MOOD ALTERED [None]
  - PERSONALITY CHANGE [None]
  - SOMNOLENCE [None]
  - SUICIDAL IDEATION [None]
